FAERS Safety Report 13563977 (Version 2)
Quarter: 2017Q2

REPORT INFORMATION
  Report Type: Spontaneous
  Country: JP (occurrence: JP)
  Receive Date: 20170519
  Receipt Date: 20170524
  Transmission Date: 20170830
  Serious: Yes (Death)
  Sender: FDA-Public Use
  Company Number: JP-JNJFOC-20170517423

PATIENT
  Age: 66 Year
  Sex: Female
  Weight: 55 kg

DRUGS (6)
  1. VEGETAMIN A [Concomitant]
     Active Substance: CHLORPROMAZINE HYDROCHLORIDE\PHENOBARBITAL\PROMETHAZINE
     Indication: SCHIZOPHRENIA
     Route: 048
     Dates: start: 20160121
  2. XEPLION [Suspect]
     Active Substance: PALIPERIDONE PALMITATE
     Indication: SCHIZOPHRENIA
     Dosage: DELTOID MUSCLE
     Route: 030
     Dates: start: 20160913, end: 20160913
  3. XEPLION [Suspect]
     Active Substance: PALIPERIDONE PALMITATE
     Indication: SCHIZOPHRENIA
     Dosage: DELTOID MUSCLE
     Route: 030
     Dates: start: 20160906, end: 20160906
  4. XEPLION [Suspect]
     Active Substance: PALIPERIDONE PALMITATE
     Indication: SCHIZOPHRENIA
     Dosage: DELTOID MUSCLE
     Route: 030
     Dates: start: 20161013, end: 20170428
  5. FLUNITRAZEPAM [Concomitant]
     Active Substance: FLUNITRAZEPAM
     Indication: PRODUCT USED FOR UNKNOWN INDICATION
     Route: 048
     Dates: start: 20160902
  6. FLUNITRAZEPAM [Concomitant]
     Active Substance: FLUNITRAZEPAM
     Indication: PRODUCT USED FOR UNKNOWN INDICATION
     Dosage: OVERDOSE, 7 DOSES OF FLUNITRAZEPAM 1 MG
     Route: 048
     Dates: start: 20170421, end: 20170421

REACTIONS (1)
  - Completed suicide [Fatal]
